FAERS Safety Report 10951530 (Version 2)
Quarter: 2015Q2

REPORT INFORMATION
  Report Type: Spontaneous
  Country: US (occurrence: US)
  Receive Date: 20150324
  Receipt Date: 20150525
  Transmission Date: 20150821
  Serious: No
  Sender: FDA-Public Use
  Company Number: US-JNJFOC-20130611211

PATIENT
  Age: 91 Year
  Sex: Female
  Weight: 57.15 kg

DRUGS (6)
  1. RISPERIDONE. [Suspect]
     Active Substance: RISPERIDONE
     Indication: FALL
     Route: 048
     Dates: start: 2003
  2. RISPERIDONE. [Suspect]
     Active Substance: RISPERIDONE
     Indication: AGITATION
     Route: 048
     Dates: start: 2003
  3. RISPERIDONE. [Suspect]
     Active Substance: RISPERIDONE
     Indication: CRYING
     Route: 048
     Dates: end: 201205
  4. RISPERIDONE. [Suspect]
     Active Substance: RISPERIDONE
     Indication: FALL
     Route: 048
     Dates: end: 201205
  5. RISPERIDONE. [Suspect]
     Active Substance: RISPERIDONE
     Indication: CRYING
     Route: 048
     Dates: start: 2003
  6. RISPERIDONE. [Suspect]
     Active Substance: RISPERIDONE
     Indication: AGITATION
     Route: 048
     Dates: end: 201205

REACTIONS (7)
  - Off label use [Unknown]
  - Photopsia [Unknown]
  - Hypertension [Unknown]
  - Confusional state [Unknown]
  - Adverse drug reaction [Unknown]
  - Gait disturbance [Unknown]
  - Fall [Unknown]

NARRATIVE: CASE EVENT DATE: 201205
